FAERS Safety Report 9358727 (Version 1)
Quarter: 2013Q2

REPORT INFORMATION
  Report Type: Spontaneous
  Country: US (occurrence: US)
  Receive Date: 20130620
  Receipt Date: 20130620
  Transmission Date: 20140414
  Serious: Yes (Other)
  Sender: FDA-Public Use
  Company Number: US-BAYER-2013-073682

PATIENT
  Age: 21 Year
  Sex: Female

DRUGS (1)
  1. MIRENA [Suspect]
     Indication: CONTRACEPTION
     Dosage: 20 MCG/24HR, CONT
     Route: 015
     Dates: start: 201301

REACTIONS (6)
  - Vaginal haemorrhage [None]
  - Pregnancy with contraceptive device [None]
  - Malaise [None]
  - Food craving [None]
  - Fatigue [None]
  - Amenorrhoea [None]
